FAERS Safety Report 24921001 (Version 1)
Quarter: 2025Q1

REPORT INFORMATION
  Report Type: Spontaneous
  Country: US (occurrence: US)
  Receive Date: 20250204
  Receipt Date: 20250204
  Transmission Date: 20250409
  Serious: No
  Sender: TARO
  Company Number: US-TARO PHARMACEUTICALS USA INC.-2024TAR02846

PATIENT

DRUGS (2)
  1. ADAPALENE [Suspect]
     Active Substance: ADAPALENE
     Indication: Acne
     Dosage: OD AT NIGHT, SMALL AMOUNT THIN LAYER
     Route: 065
     Dates: start: 202412
  2. ADAPALENE [Suspect]
     Active Substance: ADAPALENE
     Indication: Pigmentation disorder

REACTIONS (4)
  - Rash [Unknown]
  - Skin burning sensation [Unknown]
  - Pain of skin [Unknown]
  - Erythema [Unknown]

NARRATIVE: CASE EVENT DATE: 20241217
